FAERS Safety Report 23863220 (Version 2)
Quarter: 2024Q2

REPORT INFORMATION
  Report Type: Spontaneous
  Country: DE (occurrence: DE)
  Receive Date: 20240516
  Receipt Date: 20240521
  Transmission Date: 20240716
  Serious: Yes (Other)
  Sender: FDA-Public Use
  Company Number: DE-DEXPHARM-2024-1102

PATIENT
  Age: 70 Year
  Sex: Female
  Weight: 56 kg

DRUGS (16)
  1. TRIMIPRAMINE [Suspect]
     Active Substance: TRIMIPRAMINE
     Indication: Depression
     Dosage: 25 MILLIGRAM, TID (1-1-1-0)
     Route: 048
  2. LACOSAMIDE [Suspect]
     Active Substance: LACOSAMIDE
     Indication: Generalised tonic-clonic seizure
     Dosage: 200 MILLIGRAM, BID (1-0-1-0)
     Route: 048
  3. BISOPROLOL [Interacting]
     Active Substance: BISOPROLOL\BISOPROLOL FUMARATE
     Indication: Hypertension
     Dosage: 2.5 MILLIGRAM, QD (1-0-0-0)
     Route: 048
  4. LEVETIRACETAM [Interacting]
     Active Substance: LEVETIRACETAM
     Indication: Generalised tonic-clonic seizure
     Dosage: 1250 MILLIGRAM, BID (500 MG, 2.5-0-2.5-0)
     Route: 048
  5. BROMAZEPAM [Suspect]
     Active Substance: BROMAZEPAM
     Indication: Drug dependence
     Dosage: 6 MILLIGRAM, QD (0.5-0-0.5-0)
     Route: 048
     Dates: start: 1994
  6. BROMAZEPAM [Suspect]
     Active Substance: BROMAZEPAM
     Indication: Anxiety
  7. QUETIAPINE [Suspect]
     Active Substance: QUETIAPINE
     Indication: Anxiety disorder
     Dosage: 25 MILLIGRAM, QD (0-0-0-1)
     Route: 048
     Dates: start: 2023
  8. DOXYLAMINE [Interacting]
     Active Substance: DOXYLAMINE
     Indication: Product used for unknown indication
     Dosage: 25 MILLIGRAM, QD (NOT PRESCRIBED, OTC, 0-0-0-1)
     Route: 048
  9. AMLODIPINE BESYLATE [Concomitant]
     Active Substance: AMLODIPINE BESYLATE
     Indication: Hypertension
     Dosage: 5 MILLIGRAM, QD (1-0-0-0)
     Route: 048
  10. SENNA LEAF [Concomitant]
     Active Substance: SENNA LEAF
     Dosage: UNK UNK, PRN
     Route: 048
  11. FOLIC ACID [Concomitant]
     Active Substance: FOLIC ACID
     Dosage: 5 MILLIGRAM, QD (1-0-0-0)
     Route: 048
  12. TORSEMIDE [Concomitant]
     Active Substance: TORSEMIDE
     Indication: Hypertension
     Dosage: 10 MILLIGRAM, QD (1-0-0-0)
     Route: 048
  13. APIXABAN [Concomitant]
     Active Substance: APIXABAN
     Dosage: 5 MILLIGRAM, BID (1-0-1-0)
     Route: 048
  14. IRON FERROUS [Concomitant]
     Dosage: 100 MILLIGRAM, QOD (1-0-0-0, EVERY OTHER DAY)
     Route: 048
  15. PANTOPRAZOLE SODIUM [Concomitant]
     Active Substance: PANTOPRAZOLE SODIUM
     Dosage: 40 MILLIGRAM, QD (0-0-1-0)
     Route: 048
  16. RAMIPRIL [Concomitant]
     Active Substance: RAMIPRIL
     Indication: Hypertension
     Dosage: 5 MILLIGRAM, BID (1-0-1-0)
     Route: 048

REACTIONS (8)
  - Delirium [Unknown]
  - Bradycardia [Unknown]
  - Drug interaction [Unknown]
  - Fatigue [Unknown]
  - Gait disturbance [Unknown]
  - Fall [Unknown]
  - General physical health deterioration [Unknown]
  - Apathy [Unknown]
